FAERS Safety Report 13074646 (Version 2)
Quarter: 2017Q1

REPORT INFORMATION
  Report Type: Spontaneous
  Country: IT (occurrence: IT)
  Receive Date: 20161230
  Receipt Date: 20170125
  Transmission Date: 20170428
  Serious: Yes (Other)
  Sender: FDA-Public Use
  Company Number: IT-ACCORD-047034

PATIENT
  Age: 64 Year
  Sex: Female

DRUGS (2)
  1. METHOTREXATE. [Suspect]
     Active Substance: METHOTREXATE
     Indication: STILL^S DISEASE ADULT ONSET
  2. PREDNISONE/PREDNISONE ACETATE [Concomitant]
     Indication: STILL^S DISEASE ADULT ONSET
     Route: 048

REACTIONS (2)
  - Neurofibromatosis [Recovering/Resolving]
  - Off label use [Unknown]
